FAERS Safety Report 9227369 (Version 1)
Quarter: 2013Q2

REPORT INFORMATION
  Report Type: Spontaneous
  Country: US (occurrence: None)
  Receive Date: 20130411
  Receipt Date: 20130411
  Transmission Date: 20140414
  Serious: Yes (Hospitalization)
  Sender: FDA-Public Use
  Company Number: None

PATIENT
  Age: 57 Year
  Sex: Female
  Weight: 63 kg

DRUGS (24)
  1. TRAZODONE [Suspect]
     Indication: PAIN
     Dosage: RECENT
     Route: 048
  2. MS CONTIN [Suspect]
     Dosage: 30MG TID PRN PAIN PO ?RECENT
     Route: 048
  3. HUMALOG [Concomitant]
  4. LANTUS [Concomitant]
  5. VIT E [Concomitant]
  6. ZOFRAN [Concomitant]
  7. VIT D [Concomitant]
  8. MACROBID [Concomitant]
  9. PREDNISONE [Concomitant]
  10. MEDPROLOL [Concomitant]
  11. MIRTAZAPINE [Concomitant]
  12. METOCLOPRAMIDE [Concomitant]
  13. LISINOPRIL [Concomitant]
  14. LEVOTHYROXINE [Concomitant]
  15. DOCUSATE [Concomitant]
  16. FOLIC ACID [Concomitant]
  17. DEXLANSOPRAZOLE [Suspect]
  18. CALCIUM + VIT D [Concomitant]
  19. KLONOPIN [Concomitant]
  20. ATORVASTATIN [Concomitant]
  21. AMITIZA [Concomitant]
  22. BUPROPION [Concomitant]
  23. ASA [Concomitant]
  24. MVI [Concomitant]

REACTIONS (2)
  - Pneumonia [None]
  - Somnolence [None]
